FAERS Safety Report 5227377-1 (Version None)
Quarter: 2007Q1

REPORT INFORMATION
  Report Type: 
  Country: None (occurrence: None)
  Receive Date: 20070130
  Receipt Date: 20070128
  Transmission Date: 20070707
  Serious: Yes (Death)
  Sender: FDA-Public Use
  Company Number: GXKR2007US00936

PATIENT
  Age: 5 Year
  Sex: Male

DRUGS (1)
  1. CEFPROZIL [Suspect]
     Indication: PYREXIA

REACTIONS (10)
  - CARDIO-RESPIRATORY ARREST [None]
  - CONVULSION [None]
  - GASTRITIS EROSIVE [None]
  - LETHARGY [None]
  - LIVER ABSCESS [None]
  - MENTAL STATUS CHANGES [None]
  - MYOCARDIAL INFARCTION [None]
  - MYOCARDITIS [None]
  - SYNCOPE [None]
  - VOMITING [None]
